FAERS Safety Report 4562410-1 (Version None)
Quarter: 2005Q1

REPORT INFORMATION
  Report Type: 
  Country: None (occurrence: None)
  Receive Date: 20050127
  Receipt Date: 20041026
  Transmission Date: 20050727
  Serious: No
  Sender: FDA-Public Use
  Company Number: US-BRISTOL-MYERS SQUIBB COMPANY-12745253

PATIENT
  Age: 81 Year
  Sex: Female

DRUGS (3)
  1. KENALOG [Suspect]
     Indication: ARTHRITIS
     Dosage: ROUTE: ^TARSAL-METATARSAL^
     Route: 051
     Dates: start: 20041022, end: 20041022
  2. MARCAINE [Suspect]
     Route: 051
     Dates: start: 20041022, end: 20041022
  3. HYDROCHLOROTHIAZIDE [Concomitant]

REACTIONS (4)
  - BLOOD PRESSURE INCREASED [None]
  - ERYTHEMA [None]
  - HEADACHE [None]
  - SWELLING FACE [None]
